FAERS Safety Report 17513893 (Version 1)
Quarter: 2020Q1

REPORT INFORMATION
  Report Type: Spontaneous
  Country: JP (occurrence: JP)
  Receive Date: 20200306
  Receipt Date: 20200306
  Transmission Date: 20200409
  Serious: Yes (Death)
  Sender: FDA-Public Use
  Company Number: JP-AMGEN-JPNSP2020036879

PATIENT
  Age: 10 Decade
  Sex: Male

DRUGS (1)
  1. NESP [Suspect]
     Active Substance: DARBEPOETIN ALFA
     Indication: NEPHROGENIC ANAEMIA
     Dosage: 30 MICROGRAM
     Route: 058

REACTIONS (1)
  - Marasmus [Fatal]
